FAERS Safety Report 6179674-3 (Version None)
Quarter: 2009Q2

REPORT INFORMATION
  Report Type: 
  Country: None (occurrence: None)
  Receive Date: 20090505
  Receipt Date: 20090428
  Transmission Date: 20091009
  Serious: Yes (Other)
  Sender: FDA-Public Use
  Company Number: PHEH2009US00937

PATIENT
  Sex: Female

DRUGS (6)
  1. TEKTURNA [Suspect]
     Indication: BLOOD PRESSURE ABNORMAL
     Dosage: 300 MG, UNK
  2. NIFEDIPINE [Concomitant]
     Indication: BLOOD PRESSURE MANAGEMENT
     Dosage: 30 MG, UNK
  3. ACTIMOL [Concomitant]
  4. ALPRAZOLAM [Concomitant]
     Indication: BLOOD PRESSURE MANAGEMENT
     Dosage: 25 MG, UNK
  5. ATENOLOL [Concomitant]
     Indication: BLOOD PRESSURE MANAGEMENT
     Dosage: 50 MG, UNK
  6. PLAVIX [Concomitant]

REACTIONS (3)
  - AORTIC ANEURYSM [None]
  - ASTHENIA [None]
  - SURGERY [None]
